FAERS Safety Report 10496049 (Version 2)
Quarter: 2014Q4

REPORT INFORMATION
  Report Type: Report from Study
  Country: BR (occurrence: BR)
  Receive Date: 20141003
  Receipt Date: 20141104
  Transmission Date: 20150528
  Serious: Yes (Life-Threatening, Other)
  Sender: FDA-Public Use
  Company Number: PHHY2014BR129295

PATIENT
  Sex: Male
  Weight: 80 kg

DRUGS (13)
  1. STALEVO [Suspect]
     Active Substance: CARBIDOPA\ENTACAPONE\LEVODOPA
     Indication: PARKINSON^S DISEASE
     Dosage: 4 DF, DAILY
     Route: 048
  2. QUETIAPINE [Concomitant]
     Active Substance: QUETIAPINE
     Dosage: UNK
     Route: 065
  3. GLIBENCLAMIDE [Concomitant]
     Active Substance: GLYBURIDE
     Dosage: UNK, QD
     Route: 065
  4. QUETIAPINE [Concomitant]
     Active Substance: QUETIAPINE
     Indication: PARKINSON^S DISEASE
     Dosage: 25 MG, UNK, (2 WEEKS)
     Route: 065
  5. GLIBENCLAMIDE [Concomitant]
     Active Substance: GLYBURIDE
     Indication: TYPE 2 DIABETES MELLITUS
     Dosage: 5 MG, UNK, (APPROXIMATELY 3 YEARS)
     Route: 065
  6. LEVOTHYROXINE [Concomitant]
     Active Substance: LEVOTHYROXINE
     Indication: HYPOTHYROIDISM
     Dosage: 75 MG, UNK, (20 YEARS)
     Route: 065
  7. VALSARTAN. [Concomitant]
     Active Substance: VALSARTAN
     Indication: HYPERTENSION
     Dosage: 320 MG, UNK, (MANY YEARS)
     Route: 065
  8. SIFROL [Concomitant]
     Active Substance: PRAMIPEXOLE
     Indication: PARKINSON^S DISEASE
     Dosage: 1.0 MG, UNK, (FOR MANY YEARS)
     Route: 065
  9. SIMVASTATIN. [Concomitant]
     Active Substance: SIMVASTATIN
     Indication: BLOOD CHOLESTEROL INCREASED
     Dosage: 20 MG, UNK, (APPROXIMATELY 5 OR 4 YEAR)
     Route: 065
  10. LOSARTAN POTASSIUM. [Concomitant]
     Active Substance: LOSARTAN POTASSIUM
     Indication: HYPERTENSION
     Dosage: 0.5 DF, BID (HALF IN THE MORNING AND HALF IN THE AFTERNOON)
     Route: 065
     Dates: start: 20141001
  11. FUROSEMIDE. [Concomitant]
     Active Substance: FUROSEMIDE
     Indication: HYPERTENSION
     Dosage: (1 TABLET OF 20 MG OR HALF TABLET OF 40 MG), (MANY YEARS)
     Route: 065
  12. EXON [Suspect]
     Active Substance: EPERISONE HYDROCHLORIDE
     Indication: PARKINSON^S DISEASE
     Dosage: 4 DF, DAILY
     Route: 048
  13. METFORMIN [Concomitant]
     Active Substance: METFORMIN HYDROCHLORIDE
     Indication: TYPE 2 DIABETES MELLITUS
     Dosage: 850 MG, UNK, (APPROXIMATELY 3 YEAR)
     Route: 065

REACTIONS (21)
  - Blood glucose decreased [Recovered/Resolved]
  - Fall [Recovered/Resolved]
  - Fluid retention [Not Recovered/Not Resolved]
  - Malaise [Unknown]
  - Hallucination [Unknown]
  - Blood pressure decreased [Recovered/Resolved]
  - Weight increased [Recovered/Resolved]
  - Joint effusion [Not Recovered/Not Resolved]
  - Abasia [Recovering/Resolving]
  - Memory impairment [Recovered/Resolved]
  - Loss of control of legs [Not Recovered/Not Resolved]
  - Delirium [Recovered/Resolved]
  - Feeling abnormal [Unknown]
  - Parkinson^s disease [Recovering/Resolving]
  - Weight decreased [Not Recovered/Not Resolved]
  - Depression [Recovered/Resolved]
  - Limb injury [Unknown]
  - Body height decreased [Not Recovered/Not Resolved]
  - Contusion [Unknown]
  - Gait disturbance [Not Recovered/Not Resolved]
  - Impulse-control disorder [Recovered/Resolved]
